FAERS Safety Report 21913907 (Version 1)
Quarter: 2023Q1

REPORT INFORMATION
  Report Type: Spontaneous
  Country: US (occurrence: US)
  Receive Date: 20230125
  Receipt Date: 20230125
  Transmission Date: 20230417
  Serious: No
  Sender: FDA-Public Use
  Company Number: US-ALLERGAN-2222996US

PATIENT

DRUGS (1)
  1. BOTOX [Suspect]
     Active Substance: ONABOTULINUMTOXINA
     Indication: Product used for unknown indication
     Dosage: UNK, SINGLE
     Dates: start: 2022, end: 2022

REACTIONS (3)
  - Skin hyperpigmentation [Unknown]
  - Eyelid ptosis [Unknown]
  - Headache [Unknown]

NARRATIVE: CASE EVENT DATE: 20220101
